FAERS Safety Report 5111616-1 (Version None)
Quarter: 2006Q3

REPORT INFORMATION
  Report Type: 
  Country: None (occurrence: None)
  Receive Date: 20060922
  Receipt Date: 20060908
  Transmission Date: 20061208
  Serious: Yes (Hospitalization)
  Sender: FDA-Public Use
  Company Number: PHRM2006FR02512

PATIENT
  Age: 86 Year
  Sex: Female

DRUGS (7)
  1. VOLTAREN [Suspect]
     Indication: BACK PAIN
     Route: 048
     Dates: start: 20060612, end: 20060618
  2. DI-ANTALVIC [Suspect]
     Indication: BACK PAIN
     Dosage: TOTAL OF 6 TABLETS
     Route: 048
     Dates: start: 20060612, end: 20060618
  3. ALDACTAZINE [Suspect]
     Indication: PULMONARY EMBOLISM
     Dosage: 1 DF, QD
     Route: 048
  4. DEROXAT [Suspect]
     Indication: DEMENTIA ALZHEIMER'S TYPE
     Dosage: 10 MG, QD
     Route: 048
  5. ARICEPT [Suspect]
     Indication: DEMENTIA ALZHEIMER'S TYPE
     Dosage: ALTERNATELY 5 AND 10 MG EVERY 2 DAYS
     Route: 048
  6. PREVISCAN [Concomitant]
     Route: 048
  7. ATHYMIL [Concomitant]
     Route: 048

REACTIONS (10)
  - ABDOMINAL DISTENSION [None]
  - ANOREXIA [None]
  - ASTHENIA [None]
  - BLOOD CREATININE INCREASED [None]
  - C-REACTIVE PROTEIN INCREASED [None]
  - CONSTIPATION [None]
  - DRUG INEFFECTIVE [None]
  - ENEMA ADMINISTRATION [None]
  - FAECALOMA [None]
  - INTESTINAL FUNCTIONAL DISORDER [None]
